FAERS Safety Report 23479915 (Version 1)
Quarter: 2024Q1

REPORT INFORMATION
  Report Type: Spontaneous
  Country: US (occurrence: US)
  Receive Date: 20240205
  Receipt Date: 20240205
  Transmission Date: 20240410
  Serious: No
  Sender: FDA-Public Use
  Company Number: US-HETERO-HET2024US00265

PATIENT
  Age: 77 Year
  Sex: Female

DRUGS (1)
  1. DABIGATRAN ETEXILATE [Suspect]
     Active Substance: DABIGATRAN ETEXILATE
     Indication: Atrial fibrillation
     Dosage: 150 MILLIGRAM, TWICE A DAY
     Route: 048

REACTIONS (3)
  - Epistaxis [Unknown]
  - Gingival bleeding [Unknown]
  - Gastrooesophageal reflux disease [Unknown]
